FAERS Safety Report 6974496-5 (Version None)
Quarter: 2010Q3

REPORT INFORMATION
  Report Type: 
  Country: None (occurrence: None)
  Receive Date: 20100909
  Receipt Date: 20100906
  Transmission Date: 20110219
  Serious: Yes (Death, Hospitalization)
  Sender: FDA-Public Use
  Company Number: GB-MERCK-1008GBR00039

PATIENT
  Age: 83 Year
  Sex: Male

DRUGS (6)
  1. SINEMET [Suspect]
     Indication: PARKINSON'S DISEASE
     Route: 048
  2. TRAMADOL HYDROCHLORIDE [Suspect]
     Indication: BACK PAIN
     Route: 048
     Dates: start: 20090201
  3. ALENDRONATE SODIUM AND CHOLECALCIFEROL [Concomitant]
     Route: 048
  4. LANSOPRAZOLE [Concomitant]
     Route: 065
  5. PREGABALIN [Concomitant]
     Route: 065
     Dates: end: 20090209
  6. RAMIPRIL [Concomitant]
     Route: 065

REACTIONS (9)
  - CONDITION AGGRAVATED [None]
  - CONFUSIONAL STATE [None]
  - DEEP VEIN THROMBOSIS [None]
  - DRUG INEFFECTIVE [None]
  - DRUG INTERACTION [None]
  - DYSPNOEA [None]
  - MENINGITIS [None]
  - PULMONARY EMBOLISM [None]
  - SLEEP DISORDER [None]
